FAERS Safety Report 4666244-9 (Version None)
Quarter: 2005Q2

REPORT INFORMATION
  Report Type: 
  Country: None (occurrence: None)
  Receive Date: 20050518
  Receipt Date: 20050509
  Transmission Date: 20051028
  Serious: Yes (Death, Disabling, Other)
  Sender: FDA-Public Use
  Company Number: 2005-04-0853

PATIENT
  Age: 47 Year
  Sex: Male

DRUGS (5)
  1. INTRON A [Suspect]
     Indication: MALIGNANT MELANOMA
     Dosage: 20-10 MU/M^2*
     Dates: start: 19990501, end: 19990601
  2. INTRON A [Suspect]
     Indication: MALIGNANT MELANOMA
     Dosage: 20-10 MU/M^2*
     Dates: start: 19990601, end: 19990601
  3. INTRON A [Suspect]
     Indication: MALIGNANT MELANOMA
     Dosage: 20-10 MU/M^2*
     Dates: start: 19990501, end: 19991001
  4. RADIATION THERAPY NO DOSE FORM [Suspect]
     Indication: MALIGNANT MELANOMA
     Dosage: 36 GY X-RAY THERAPY
     Dates: start: 19990601
  5. PARACETAMOL [Concomitant]

REACTIONS (28)
  - ABASIA [None]
  - ALOPECIA [None]
  - ANURIA [None]
  - AREFLEXIA [None]
  - ASTHENIA [None]
  - DIFFICULTY IN WALKING [None]
  - DYSTONIA [None]
  - EXTENSOR PLANTAR RESPONSE [None]
  - FACIAL PARESIS [None]
  - HORNER'S SYNDROME [None]
  - HYPERREFLEXIA [None]
  - HYPOCHROMASIA [None]
  - MALIGNANT MELANOMA [None]
  - MALIGNANT NEOPLASM PROGRESSION [None]
  - METASTATIC NEOPLASM [None]
  - MYELITIS [None]
  - NEURALGIC AMYOTROPHY [None]
  - PAIN IN EXTREMITY [None]
  - PARESIS CRANIAL NERVE [None]
  - PNEUMONIA [None]
  - QUADRIPARESIS [None]
  - QUADRIPLEGIA [None]
  - RADIATION INJURY [None]
  - RADIATION SKIN INJURY [None]
  - REFLEXES ABNORMAL [None]
  - SENSORY LOSS [None]
  - TONGUE ATROPHY [None]
  - URINARY RETENTION [None]
